FAERS Safety Report 17337155 (Version 1)
Quarter: 2020Q1

REPORT INFORMATION
  Report Type: Spontaneous
  Country: PT (occurrence: PT)
  Receive Date: 20200129
  Receipt Date: 20200129
  Transmission Date: 20200409
  Serious: Yes (Hospitalization, Other)
  Sender: FDA-Public Use
  Company Number: NVSC2020PT004039

PATIENT
  Age: 72 Year
  Sex: Female

DRUGS (1)
  1. AZITHROMYCIN ANHYDROUS. [Suspect]
     Active Substance: AZITHROMYCIN ANHYDROUS
     Indication: ODYNOPHAGIA
     Dosage: UNK
     Route: 065

REACTIONS (6)
  - Pruritus [Recovering/Resolving]
  - Malaise [Recovering/Resolving]
  - Pharyngeal enanthema [Recovering/Resolving]
  - Stevens-Johnson syndrome [Recovering/Resolving]
  - Dermatosis [Recovering/Resolving]
  - Erythema [Recovering/Resolving]
